FAERS Safety Report 7245732-5 (Version None)
Quarter: 2011Q1

REPORT INFORMATION
  Report Type: 
  Country: None (occurrence: None)
  Receive Date: 20110126
  Receipt Date: 20110114
  Transmission Date: 20110831
  Serious: Yes (Hospitalization)
  Sender: FDA-Public Use
  Company Number: JP-ROCHE-752800

PATIENT
  Sex: Male

DRUGS (15)
  1. SANDIMMUNE [Suspect]
     Indication: JUVENILE ARTHRITIS
     Route: 041
     Dates: start: 20100924, end: 20100926
  2. PREDONINE [Concomitant]
     Route: 048
     Dates: start: 20101221, end: 20110103
  3. DIDRONEL [Concomitant]
     Route: 048
     Dates: start: 20101210, end: 20101224
  4. TOCILIZUMAB [Suspect]
     Indication: JUVENILE ARTHRITIS
     Route: 041
     Dates: start: 20101109, end: 20101228
  5. SANDIMMUNE [Suspect]
     Route: 041
     Dates: start: 20101004
  6. SANDIMMUNE [Suspect]
     Route: 041
     Dates: start: 20101119, end: 20101122
  7. PREDONINE [Concomitant]
     Route: 048
     Dates: start: 20101001, end: 20101118
  8. METHYLPREDNISOLONE [Concomitant]
     Route: 042
  9. DEXAMETHASONE PALMITATE [Concomitant]
     Route: 041
     Dates: start: 20101019
  10. URSO 250 [Concomitant]
     Route: 048
     Dates: start: 20101211, end: 20110103
  11. NEORAL [Concomitant]
     Route: 048
     Dates: start: 20101005, end: 20110104
  12. SANDIMMUNE [Suspect]
     Route: 041
     Dates: start: 20100927
  13. RENIVEZE [Concomitant]
     Route: 048
     Dates: start: 20101008, end: 20110103
  14. SANDIMMUNE [Suspect]
     Route: 041
     Dates: start: 20101123, end: 20101210
  15. FAMOTIDINE [Concomitant]
     Route: 048
     Dates: start: 20100910, end: 20110103

REACTIONS (2)
  - HISTIOCYTOSIS HAEMATOPHAGIC [None]
  - TOXIC ENCEPHALOPATHY [None]
